FAERS Safety Report 25983399 (Version 1)
Quarter: 2025Q4

REPORT INFORMATION
  Report Type: Report from Study
  Country: GB (occurrence: GB)
  Receive Date: 20251031
  Receipt Date: 20251031
  Transmission Date: 20260118
  Serious: Yes (Hospitalization, Other)
  Sender: TEVA
  Company Number: GB-TEVA-VS-3387082

PATIENT
  Age: 64 Year
  Sex: Male

DRUGS (1)
  1. AJOVY [Suspect]
     Active Substance: FREMANEZUMAB-VFRM
     Indication: Migraine
     Dosage: STRENGTH:225MG/1.5ML
     Route: 058

REACTIONS (5)
  - Motor neurone disease [Unknown]
  - Product dose omission issue [Unknown]
  - Urinary tract disorder [Unknown]
  - Inappropriate schedule of product administration [Unknown]
  - Faecaloma [Unknown]
